FAERS Safety Report 6083703-5 (Version None)
Quarter: 2009Q1

REPORT INFORMATION
  Report Type: 
  Country: None (occurrence: None)
  Receive Date: 20090217
  Receipt Date: 20090217
  Transmission Date: 20090719
  Serious: Yes (Hospitalization)
  Sender: FDA-Public Use
  Company Number: None

PATIENT
  Sex: Male
  Weight: 98.4 kg

DRUGS (5)
  1. SAHA/VORINOSTAT [Suspect]
     Indication: NON-SMALL CELL LUNG CANCER
     Dosage: 400MG QD DAYS 1-14 PO
     Route: 048
     Dates: start: 20090106, end: 20090120
  2. PS341/BORTEZOMIB BORTEZOMIB [Suspect]
     Indication: NON-SMALL CELL LUNG CANCER
     Dosage: 1.3 MG/M2 DAY 1,4,8,11 OF 21 DAY CYCLE IV
     Route: 042
     Dates: start: 20090106
  3. PS341/BORTEZOMIB BORTEZOMIB [Suspect]
     Indication: NON-SMALL CELL LUNG CANCER
     Dosage: 1.3 MG/M2 DAY 1,4,8,11 OF 21 DAY CYCLE IV
     Route: 042
     Dates: start: 20090109
  4. PS341/BORTEZOMIB BORTEZOMIB [Suspect]
     Indication: NON-SMALL CELL LUNG CANCER
     Dosage: 1.3 MG/M2 DAY 1,4,8,11 OF 21 DAY CYCLE IV
     Route: 042
     Dates: start: 20090113
  5. PS341/BORTEZOMIB BORTEZOMIB [Suspect]
     Indication: NON-SMALL CELL LUNG CANCER
     Dosage: 1.3 MG/M2 DAY 1,4,8,11 OF 21 DAY CYCLE IV
     Route: 042
     Dates: start: 20090116

REACTIONS (3)
  - HEMIPARESIS [None]
  - METASTASES TO CENTRAL NERVOUS SYSTEM [None]
  - PERIPHERAL MOTOR NEUROPATHY [None]
